FAERS Safety Report 8933830 (Version 1)
Quarter: 2012Q4

REPORT INFORMATION
  Report Type: 
  Country: CH (occurrence: CH)
  Receive Date: 20121129
  Receipt Date: 20121129
  Transmission Date: 20130627
  Serious: Yes (Hospitalization, Other)
  Sender: FDA-Public Use
  Company Number: CH-ELI_LILLY_AND_COMPANY-CH201211005680

PATIENT
  Age: 50 Year
  Sex: Male

DRUGS (4)
  1. ZYPREXA [Suspect]
     Dosage: 5 mg, qd
     Route: 048
     Dates: start: 20121010, end: 20121025
  2. METHADONE [Concomitant]
     Dosage: 115 mg, qd
     Route: 048
     Dates: start: 20121011
  3. LEXOTANIL [Concomitant]
     Dosage: 6 mg, bid
     Route: 048
  4. ASPIRIN CARDIO [Concomitant]
     Dosage: 100 mg, qd
     Route: 048

REACTIONS (3)
  - Rhabdomyolysis [Unknown]
  - Electrocardiogram QT prolonged [Unknown]
  - Chest pain [Unknown]
